FAERS Safety Report 6653689-0 (Version None)
Quarter: 2010Q1

REPORT INFORMATION
  Report Type: 
  Country: None (occurrence: None)
  Receive Date: 20100326
  Receipt Date: 20100303
  Transmission Date: 20100710
  Serious: Yes (Other)
  Sender: FDA-Public Use
  Company Number: FR-CEPHALON-2010001732

PATIENT
  Sex: Male

DRUGS (3)
  1. TREANDA [Suspect]
     Indication: NON-HODGKIN'S LYMPHOMA
     Dates: start: 20080821
  2. TREANDA [Suspect]
     Dates: start: 20080917, end: 20090115
  3. MABTHERA [Suspect]
     Indication: NON-HODGKIN'S LYMPHOMA

REACTIONS (2)
  - LUNG INFECTION PSEUDOMONAL [None]
  - THROMBOCYTOPENIA [None]
